FAERS Safety Report 15701468 (Version 1)
Quarter: 2018Q4

REPORT INFORMATION
  Report Type: Other
  Country: DE (occurrence: DE)
  Receive Date: 20181207
  Receipt Date: 20181207
  Transmission Date: 20190205
  Serious: Yes (Hospitalization, Disabling, Other)
  Sender: FDA-Public Use
  Company Number: DE-MACLEODS PHARMACEUTICALS US LTD-MAC2018019071

PATIENT

DRUGS (10)
  1. VALSARTAN TABLET 160MG [Suspect]
     Active Substance: VALSARTAN
     Indication: HYPERTENSION
     Dosage: 160 MILLIGRAM FILM COATED TABLETS
     Route: 048
  2. NEBIVOLOL 2.5 MG [Concomitant]
     Indication: PRODUCT USED FOR UNKNOWN INDICATION
     Dosage: 2.5 MILLIGRAM, QD (1-0-0)
     Route: 065
  3. VALSARTAN HEXAL [Suspect]
     Active Substance: VALSARTAN
     Indication: HYPERTENSION
     Dosage: UNK, FILM COATED TABLETS
     Route: 048
     Dates: start: 2012
  4. REMESTAN [Concomitant]
     Active Substance: TEMAZEPAM
     Indication: PRODUCT USED FOR UNKNOWN INDICATION
     Dosage: 1 DOSAGE FORM, QD,  (0-0-0-1)
     Route: 065
  5. RANITIDINE  300 MG [Concomitant]
     Indication: PRODUCT USED FOR UNKNOWN INDICATION
     Dosage: 300 MILLIGRAM, QD (1-0-0)
     Route: 065
  6. BEPANTHEN [Concomitant]
     Indication: PRODUCT USED FOR UNKNOWN INDICATION
     Dosage: UNK
     Route: 065
  7. IBUPROFEN. [Concomitant]
     Active Substance: IBUPROFEN
     Indication: PRODUCT USED FOR UNKNOWN INDICATION
     Dosage: 600 MILLIGRAM, PRN
     Route: 065
  8. VALSACOR [Suspect]
     Active Substance: VALSARTAN
     Indication: HYPERTENSION
     Dosage: 160 MILLIGRAM FILM COATED TABLETS
     Route: 048
  9. NOVAMINSULFON [Concomitant]
     Active Substance: METAMIZOLE
     Indication: PRODUCT USED FOR UNKNOWN INDICATION
     Dosage: 30 DROP, QD, 30GTT (1-1-1-1)
     Route: 065
  10. VALSARTAN 1 A PHARMA [Suspect]
     Active Substance: VALSARTAN
     Indication: HYPERTENSION
     Dosage: 160 MILLIGRAM FILM COATED TABLETS
     Route: 048

REACTIONS (13)
  - C-reactive protein increased [Unknown]
  - Anal cancer [Unknown]
  - Neutrophil count increased [Unknown]
  - Monocyte count increased [Unknown]
  - Pain [Unknown]
  - Lymphocyte count decreased [Unknown]
  - Fear of death [Not Recovered/Not Resolved]
  - Impaired quality of life [Unknown]
  - Skin maceration [Unknown]
  - Mental disorder [Not Recovered/Not Resolved]
  - Stevens-Johnson syndrome [Unknown]
  - Squamous cell carcinoma [Unknown]
  - Anal cancer stage 0 [Unknown]

NARRATIVE: CASE EVENT DATE: 2014
